FAERS Safety Report 5764245-0 (Version None)
Quarter: 2008Q2

REPORT INFORMATION
  Report Type: 
  Country: None (occurrence: None)
  Receive Date: 20080610
  Receipt Date: 20080529
  Transmission Date: 20081010
  Serious: Yes (Hospitalization)
  Sender: FDA-Public Use
  Company Number: FR-GENENTECH-248832

PATIENT
  Sex: Male

DRUGS (3)
  1. RITUXIMAB [Suspect]
     Indication: MANTLE CELL LYMPHOMA
     Dosage: 572 MG, UNK
     Dates: start: 20070507
  2. ENDOXAN [Suspect]
     Indication: MANTLE CELL LYMPHOMA
     Dosage: 1344 UNK, UNK
     Dates: start: 20070507
  3. FLUDARABINE PHOSPHATE [Suspect]
     Indication: MANTLE CELL LYMPHOMA
     Dosage: 169 UNK, UNK
     Dates: start: 20070507

REACTIONS (1)
  - CHONDROCALCINOSIS [None]
